FAERS Safety Report 24084369 (Version 1)
Quarter: 2024Q3

REPORT INFORMATION
  Report Type: Spontaneous
  Country: AT (occurrence: AT)
  Receive Date: 20240712
  Receipt Date: 20240712
  Transmission Date: 20241017
  Serious: Yes (Other)
  Sender: PFIZER
  Company Number: AT-ROCHE-3360990

PATIENT
  Age: 43 Year
  Sex: Female

DRUGS (10)
  1. TUKYSA [Suspect]
     Active Substance: TUCATINIB
     Dosage: UNK
     Route: 065
     Dates: start: 2021
  2. CAPECITABINE [Suspect]
     Active Substance: CAPECITABINE
     Indication: Invasive ductal breast carcinoma
     Dosage: LAPATINIB PLUS CAPECITABINE
     Route: 065
  3. CAPECITABINE [Suspect]
     Active Substance: CAPECITABINE
     Dosage: TUCATINIB PLUS CAPECITABINE
     Route: 048
     Dates: start: 2021
  4. TRASTUZUMAB [Suspect]
     Active Substance: TRASTUZUMAB
     Indication: Invasive ductal breast carcinoma
     Dosage: 520 MG IN POLYOLEFIN MACOPHARMA INFUSION IN NACL 0.9% 250 ML BAG OVER 1 HOUR 30 MIN.
     Route: 042
     Dates: start: 20210127, end: 20210610
  5. TRASTUZUMAB [Suspect]
     Active Substance: TRASTUZUMAB
     Dosage: 520 MG IN POLYOLEFIN MACOPHARMA INFUSION IN NACL 0.9% 250 ML BAG OVER 1 HOUR 30 MIN.
     Route: 042
     Dates: start: 20181016, end: 20200205
  6. PERTUZUMAB [Suspect]
     Active Substance: PERTUZUMAB
     Indication: Invasive ductal breast carcinoma
     Dosage: 840 MG IN NACL 0.9% 250 ML SACHET POLYOLEFIN MACOPHARMA INFUSION OVER 1 HR
     Route: 042
     Dates: start: 20181016, end: 20200205
  7. PACLITAXEL [Suspect]
     Active Substance: PACLITAXEL
     Indication: Invasive ductal breast carcinoma
     Dosage: UNK
     Route: 065
  8. KADCYLA [Suspect]
     Active Substance: ADO-TRASTUZUMAB EMTANSINE
     Indication: Invasive ductal breast carcinoma
     Dosage: 244.8 MG
     Route: 042
     Dates: start: 20200227, end: 20200724
  9. VINORELBINE [Suspect]
     Active Substance: VINORELBINE TARTRATE
     Indication: Invasive ductal breast carcinoma
     Dosage: UNK
     Route: 065
     Dates: start: 2021
  10. DENOSUMAB [Suspect]
     Active Substance: DENOSUMAB
     Indication: Invasive ductal breast carcinoma
     Dosage: UNK
     Route: 065

REACTIONS (5)
  - Adverse event [Unknown]
  - Metastases to central nervous system [Unknown]
  - Metastases to bone [Unknown]
  - Disease progression [Unknown]
  - Left ventricular dysfunction [Unknown]
